FAERS Safety Report 5618225-6 (Version None)
Quarter: 2008Q1

REPORT INFORMATION
  Report Type: 
  Country: None (occurrence: None)
  Receive Date: 20080206
  Receipt Date: 20080206
  Transmission Date: 20080703
  Serious: Yes (Other)
  Sender: FDA-Public Use
  Company Number: None

PATIENT
  Sex: Female
  Weight: 61.2356 kg

DRUGS (1)
  1. CHANTIX [Suspect]
     Indication: SMOKING CESSATION THERAPY
     Dosage: 1 MG B.I.D. PO 6 WEEKS
     Route: 048
     Dates: start: 20071119, end: 20080201

REACTIONS (5)
  - ABNORMAL DREAMS [None]
  - AGITATION [None]
  - HEADACHE [None]
  - INSOMNIA [None]
  - WITHDRAWAL SYNDROME [None]
